FAERS Safety Report 9531643 (Version 2)
Quarter: 2013Q4

REPORT INFORMATION
  Report Type: Spontaneous
  Country: JP (occurrence: JP)
  Receive Date: 20130918
  Receipt Date: 20131016
  Transmission Date: 20140711
  Serious: Yes (Other)
  Sender: FDA-Public Use
  Company Number: JP-009507513-1309JPN006455

PATIENT
  Age: 32 Year
  Sex: Female

DRUGS (7)
  1. ESLAX [Suspect]
     Indication: NEUROMUSCULAR BLOCKING THERAPY
     Dosage: 60 MG, QD
     Route: 042
     Dates: start: 2013, end: 2013
  2. BRIDION [Suspect]
     Indication: NEUROMUSCULAR BLOCKADE REVERSAL
     Dosage: 200 MG, QD
     Route: 042
     Dates: start: 2013, end: 2013
  3. THIAMYLAL SODIUM [Suspect]
     Dosage: 250 MG, QD
     Route: 042
     Dates: start: 2013
  4. SEVOFLURANE [Concomitant]
     Dosage: 2 %, DIVIDED DOSE FREQUENCY UNKNOWN
     Route: 055
     Dates: start: 2013
  5. DIAZEPAM [Concomitant]
     Dosage: 5 MG, DIVIDED DOSE FREQUENCY UNKNOWN
     Route: 065
     Dates: start: 2013
  6. PROPOFOL [Concomitant]
     Dosage: 2 MICROGRAM/ML, DIVIDED DOSE FREQUENCY UNKNOWN
     Route: 042
     Dates: start: 2013
  7. REMIFENTANIL HYDROCHLORIDE [Concomitant]
     Dosage: 0.3 MICROGRAM PER KILOGRAM, DIVIDED DOSE FREQUENCY UNKNOWN
     Route: 042
     Dates: start: 2013

REACTIONS (2)
  - Clonic convulsion [Recovered/Resolved]
  - Maternal exposure during pregnancy [Recovered/Resolved]
